FAERS Safety Report 20954873 (Version 1)
Quarter: 2022Q2

REPORT INFORMATION
  Report Type: Report from Study
  Country: US (occurrence: None)
  Receive Date: 20220614
  Receipt Date: 20220614
  Transmission Date: 20220720
  Serious: No
  Sender: FDA-Public Use
  Company Number: US-MDD US Operations-MDD202105-000912

PATIENT
  Age: 78 Year
  Sex: Male

DRUGS (2)
  1. APOKYN [Suspect]
     Active Substance: APOMORPHINE HYDROCHLORIDE
     Indication: Parkinson^s disease
     Route: 058
  2. APOKYN [Suspect]
     Active Substance: APOMORPHINE HYDROCHLORIDE
     Dosage: NOT PROVIDED
     Dates: start: 20180713

REACTIONS (7)
  - Throat tightness [Unknown]
  - Limb injury [Unknown]
  - Injection site nodule [Unknown]
  - Somnolence [Unknown]
  - Fall [Unknown]
  - Insomnia [Unknown]
  - Needle issue [Unknown]

NARRATIVE: CASE EVENT DATE: 20210801
